FAERS Safety Report 5397585-8 (Version None)
Quarter: 2007Q3

REPORT INFORMATION
  Report Type: 
  Country: None (occurrence: None)
  Receive Date: 20070726
  Receipt Date: 20070717
  Transmission Date: 20080115
  Serious: Yes (Other)
  Sender: FDA-Public Use
  Company Number: US-ROCHE-454541

PATIENT

DRUGS (5)
  1. ACCUTANE [Suspect]
     Indication: ACNE
     Dates: start: 19870101
  2. ACCUTANE [Suspect]
     Dosage: BEGIN OF ISOTRETINOIN 40 MG PER DAY, AND THEN ADD 40 MG MORE EVERY OTHER DAY.
     Dates: start: 19940713, end: 19940823
  3. ACCUTANE [Suspect]
     Dosage: INCREASE TO 40 MG BID ON 24 AUGUST 1994. ON 28 NOVEMBER 1994 STILL ONGOING WITH SAME DOSING REGIMEN.
     Dates: start: 19940824, end: 19950101
  4. ACCUTANE [Suspect]
     Dates: start: 20000101, end: 20000201
  5. ACCUTANE [Suspect]
     Dates: start: 20000217, end: 20000101

REACTIONS (2)
  - NO ADVERSE REACTION [None]
  - NORMAL NEWBORN [None]
